FAERS Safety Report 20066081 (Version 1)
Quarter: 2021Q4

REPORT INFORMATION
  Report Type: Spontaneous
  Country: US (occurrence: US)
  Receive Date: 20211114
  Receipt Date: 20211114
  Transmission Date: 20220303
  Serious: No
  Sender: FDA-Public Use
  Company Number: US-JNJFOC-20211109548

PATIENT
  Sex: Male

DRUGS (3)
  1. BALVERSA [Suspect]
     Active Substance: ERDAFITINIB
     Indication: Product used for unknown indication
     Route: 048
  2. BALVERSA [Suspect]
     Active Substance: ERDAFITINIB
     Route: 048
     Dates: start: 20211103
  3. BALVERSA [Suspect]
     Active Substance: ERDAFITINIB
     Dosage: DOSE REDUCTION TO 4MG WAS NEEDED DUE TO HYPERPHOSPHATEMIA AFTER 4 WEEKS ON THERAPY
     Route: 048

REACTIONS (3)
  - Hyperphosphataemia [Unknown]
  - Weight decreased [Unknown]
  - Decreased appetite [Unknown]
